FAERS Safety Report 15809948 (Version 1)
Quarter: 2019Q1

REPORT INFORMATION
  Report Type: Spontaneous
  Country: US (occurrence: US)
  Receive Date: 20190111
  Receipt Date: 20190111
  Transmission Date: 20190417
  Serious: No
  Sender: FDA-Public Use
  Company Number: US-ROCHE-2106436

PATIENT

DRUGS (2)
  1. RITUXAN [Suspect]
     Active Substance: RITUXIMAB
     Indication: PRODUCT USED FOR UNKNOWN INDICATION
     Dosage: ONGOING: UNKNOWN
     Route: 042
  2. RITUXAN [Suspect]
     Active Substance: RITUXIMAB
     Route: 042
     Dates: start: 20180406

REACTIONS (4)
  - Cough [Recovered/Resolved]
  - Throat irritation [Recovered/Resolved]
  - Product quality issue [Unknown]
  - Tongue pruritus [Recovered/Resolved]

NARRATIVE: CASE EVENT DATE: 20180406
